FAERS Safety Report 6972382-8 (Version None)
Quarter: 2010Q3

REPORT INFORMATION
  Report Type: 
  Country: None (occurrence: None)
  Receive Date: 20100909
  Receipt Date: 20100827
  Transmission Date: 20110219
  Serious: No
  Sender: FDA-Public Use
  Company Number: US-B.I. PHARMACEUTICALS,INC./RIDGEFIELD-2010-BP-08250BP

PATIENT
  Sex: Male

DRUGS (1)
  1. ATROVENT HFA [Suspect]
     Indication: CHRONIC OBSTRUCTIVE PULMONARY DISEASE
     Route: 055

REACTIONS (5)
  - LOWER RESPIRATORY TRACT INFECTION FUNGAL [None]
  - ORAL FUNGAL INFECTION [None]
  - PHARYNGEAL DISORDER [None]
  - TONGUE DISCOLOURATION [None]
  - UPPER RESPIRATORY FUNGAL INFECTION [None]
